FAERS Safety Report 19729411 (Version 1)
Quarter: 2021Q3

REPORT INFORMATION
  Report Type: Spontaneous
  Country: US (occurrence: US)
  Receive Date: 20210820
  Receipt Date: 20210820
  Transmission Date: 20211014
  Serious: No
  Sender: FDA-Public Use
  Company Number: US-MYLANLABS-2021M1039942

PATIENT
  Sex: Female
  Weight: 45 kg

DRUGS (2)
  1. VITAMIN D3 [Concomitant]
     Active Substance: CHOLECALCIFEROL
     Dosage: UNK
  2. ESTRADIOL TRANSDERMAL SYSTEM [Suspect]
     Active Substance: ESTRADIOL
     Indication: TURNER^S SYNDROME
     Dosage: 0.025 MILLIGRAM, QD (TWICE WEEKLY)
     Route: 062

REACTIONS (2)
  - Product use in unapproved indication [Not Recovered/Not Resolved]
  - Product packaging quantity issue [Not Recovered/Not Resolved]
